FAERS Safety Report 8243282-0 (Version None)
Quarter: 2012Q1

REPORT INFORMATION
  Report Type: 
  Country: None (occurrence: None)
  Receive Date: 20120314
  Receipt Date: 20101220
  Transmission Date: 20120608
  Serious: Yes (Other)
  Sender: FDA-Public Use
  Company Number: PHHY2010US88228

PATIENT
  Sex: Female

DRUGS (1)
  1. FANAPT [Suspect]
     Indication: SCHIZOPHRENIA
     Dosage: 10 MG, BID, ORAL
     Route: 048

REACTIONS (3)
  - MUSCLE RIGIDITY [None]
  - RASH [None]
  - EXTRAPYRAMIDAL DISORDER [None]
